FAERS Safety Report 25032648 (Version 1)
Quarter: 2025Q1

REPORT INFORMATION
  Report Type: Spontaneous
  Country: US (occurrence: None)
  Receive Date: 20250303
  Receipt Date: 20250303
  Transmission Date: 20250409
  Serious: Yes (Disabling, Other)
  Sender: FDA-CTU
  Company Number: None

PATIENT
  Age: 35 Year
  Sex: Female
  Weight: 135.9 kg

DRUGS (19)
  1. LEVOTHYROXINE [Suspect]
     Active Substance: LEVOTHYROXINE
     Indication: Hypothyroidism
     Route: 048
     Dates: start: 20140801
  2. ALBUTEROL [Concomitant]
     Active Substance: ALBUTEROL
  3. ALBUTEROL [Concomitant]
     Active Substance: ALBUTEROL
  4. DULERA [Concomitant]
     Active Substance: FORMOTEROL FUMARATE DIHYDRATE\MOMETASONE FUROATE
  5. MONTELUKAST [Concomitant]
     Active Substance: MONTELUKAST
  6. LEVOCETIRIZINE [Concomitant]
     Active Substance: LEVOCETIRIZINE
  7. SYNTHROID [Concomitant]
     Active Substance: LEVOTHYROXINE SODIUM
  8. PROPRANOLOL [Concomitant]
     Active Substance: PROPRANOLOL HYDROCHLORIDE
  9. AMLODIPINE [Concomitant]
     Active Substance: AMLODIPINE BESYLATE
  10. Triamcinolone + Betamethasone + Fluocinolone Acetonide Oil [Concomitant]
  11. GABAPENTIN [Concomitant]
     Active Substance: GABAPENTIN
  12. AMITRIPTYLINE [Concomitant]
     Active Substance: AMITRIPTYLINE
  13. BACLOFEN [Concomitant]
     Active Substance: BACLOFEN
  14. B12 Cyanocobalamin [Concomitant]
  15. VITAMIN D [Concomitant]
     Active Substance: VITAMIN D NOS
  16. EPIPEN [Concomitant]
     Active Substance: EPINEPHRINE
  17. IRON [Concomitant]
     Active Substance: IRON
  18. MAGNESIUM [Concomitant]
     Active Substance: MAGNESIUM
  19. POTASSIUM [Concomitant]
     Active Substance: POTASSIUM

REACTIONS (3)
  - Weight increased [None]
  - Gait inability [None]
  - Drug intolerance [None]

NARRATIVE: CASE EVENT DATE: 20140801
